FAERS Safety Report 21739417 (Version 2)
Quarter: 2024Q1

REPORT INFORMATION
  Report Type: Spontaneous
  Country: CA (occurrence: CA)
  Receive Date: 20221216
  Receipt Date: 20240221
  Transmission Date: 20240410
  Serious: Yes (Other)
  Sender: FDA-Public Use
  Company Number: CA-GLAXOSMITHKLINE-CA2022AMR185707

PATIENT

DRUGS (21)
  1. VALACYCLOVIR HYDROCHLORIDE [Suspect]
     Active Substance: VALACYCLOVIR HYDROCHLORIDE
     Indication: Product used for unknown indication
     Dosage: 3 G, QD
  2. VALACYCLOVIR HYDROCHLORIDE [Suspect]
     Active Substance: VALACYCLOVIR HYDROCHLORIDE
     Dosage: UNK
     Route: 048
  3. COSENTYX [Suspect]
     Active Substance: SECUKINUMAB
     Indication: Psoriatic arthropathy
     Dosage: 300 MG, MO
     Route: 058
  4. COSENTYX [Suspect]
     Active Substance: SECUKINUMAB
     Dosage: UNK
     Route: 065
  5. COSENTYX [Suspect]
     Active Substance: SECUKINUMAB
     Dosage: 150 MG, MO
     Route: 058
  6. COSENTYX [Suspect]
     Active Substance: SECUKINUMAB
     Dosage: 300 MG
     Route: 058
  7. ATIVAN [Concomitant]
     Active Substance: LORAZEPAM
     Indication: Product used for unknown indication
     Dosage: UNK
     Route: 065
  8. CELEBREX [Concomitant]
     Active Substance: CELECOXIB
     Indication: Product used for unknown indication
     Dosage: UNK
  9. DESOXIMETASONE [Concomitant]
     Active Substance: DESOXIMETASONE
     Indication: Spondylitis
     Dosage: UNK
     Route: 058
  10. DESOXIMETASONE [Concomitant]
     Active Substance: DESOXIMETASONE
     Indication: Psoriatic arthropathy
     Dosage: 120 ML
     Route: 030
  11. GABAPENTIN [Concomitant]
     Active Substance: GABAPENTIN
     Indication: Product used for unknown indication
     Dosage: UNK UNK, BID
     Route: 061
  12. GRAVOL [Concomitant]
     Active Substance: DIMENHYDRINATE
     Indication: Product used for unknown indication
     Dosage: UNK
     Route: 065
  13. LYRICA [Concomitant]
     Active Substance: PREGABALIN
     Indication: Neuralgia
     Dosage: UNK
     Route: 048
  14. METHOTREXATE [Concomitant]
     Active Substance: METHOTREXATE
     Indication: Psoriatic arthropathy
     Dosage: 1 DF, WE
     Route: 048
  15. MORPHINE [Concomitant]
     Active Substance: MORPHINE
     Indication: Product used for unknown indication
     Dosage: UNK
  16. MORPHINE [Concomitant]
     Active Substance: MORPHINE
     Dosage: 120 MG
     Route: 065
  17. MORPHINE [Concomitant]
     Active Substance: MORPHINE
     Dosage: 50 MG
     Route: 048
  18. PREDNISONE [Concomitant]
     Active Substance: PREDNISONE
     Indication: Product used for unknown indication
     Dosage: UNK
  19. VOLTAREN [Concomitant]
     Active Substance: DICLOFENAC SODIUM
     Indication: Psoriatic arthropathy
     Dosage: UNK
     Route: 061
  20. Statex [Concomitant]
     Indication: Psoriatic arthropathy
     Dosage: UNK, QID
     Route: 048
  21. Statex [Concomitant]
     Dosage: UNK, QID
     Route: 048

REACTIONS (15)
  - Spinal fracture [Unknown]
  - Condition aggravated [Unknown]
  - Erythema [Unknown]
  - Fatigue [Unknown]
  - Herpes zoster [Unknown]
  - Inflammation [Unknown]
  - Joint swelling [Unknown]
  - Nausea [Unknown]
  - Oral herpes [Unknown]
  - Pain [Unknown]
  - Peripheral swelling [Unknown]
  - Inappropriate schedule of product administration [Unknown]
  - Ankylosing spondylitis [Unknown]
  - Malaise [Unknown]
  - Movement disorder [Unknown]
